FAERS Safety Report 17679324 (Version 1)
Quarter: 2020Q2

REPORT INFORMATION
  Report Type: Report from Study
  Country: JP (occurrence: JP)
  Receive Date: 20200417
  Receipt Date: 20200417
  Transmission Date: 20200714
  Serious: Yes (Death, Hospitalization, Other)
  Sender: FDA-Public Use
  Company Number: JP-ASTELLAS-2019JP013242

PATIENT
  Age: 74 Year
  Sex: Male
  Weight: 65 kg

DRUGS (27)
  1. ASG-22CE [Suspect]
     Active Substance: ENFORTUMAB VEDOTIN
     Indication: TRANSITIONAL CELL CARCINOMA
     Dosage: 83 MG/DAY, UNKNOWN FREQ.
     Route: 042
     Dates: start: 20190603
  2. RESTAMIN CORTISONE [Concomitant]
     Active Substance: DIPHENHYDRAMINE HYDROCHLORIDE\HYDROCORTISONE ACETATE\NEOMYCIN SULFATE
     Indication: PRURITUS
  3. ANFLAVATE [Concomitant]
     Active Substance: BETAMETHASONE BUTYRATE PROPIONATE
     Indication: PRURITUS
  4. SOLULACT [Concomitant]
     Indication: FLUID REPLACEMENT
     Dosage: ADEQUATE DOSE, UNKNOWN FREQ.
     Route: 042
     Dates: start: 20190628, end: 20190701
  5. GEMCITABINE. [Concomitant]
     Active Substance: GEMCITABINE
     Indication: MALIGNANT NEOPLASM OF RENAL PELVIS
     Dosage: UNK UNK, UNKNOWN FREQ.
     Route: 065
     Dates: start: 201805
  6. URSODEOXYCHOLIC ACID [Concomitant]
     Active Substance: URSODIOL
     Indication: FEBRILE NEUTROPENIA
     Route: 048
     Dates: start: 20190624, end: 20190702
  7. CEFEPIME [Concomitant]
     Active Substance: CEFEPIME HYDROCHLORIDE
     Indication: FEBRILE NEUTROPENIA
     Dosage: ADEQUATE DOSE, UNKNOWN FREQ.
     Route: 042
     Dates: start: 20190627, end: 20190704
  8. OXYCODONE [Concomitant]
     Active Substance: OXYCODONE
     Indication: CANCER PAIN
     Route: 048
     Dates: start: 20190513, end: 20190702
  9. CONTOMIN [Concomitant]
     Active Substance: CHLORPROMAZINE
     Indication: INSOMNIA
     Route: 048
     Dates: start: 20190513, end: 20190629
  10. AZUNOL [Concomitant]
     Indication: RASH
     Dosage: ADEQUATE DOSE , UNKNOWN FREQ.
     Route: 061
     Dates: start: 20190627, end: 20190703
  11. ACETAMINOPHEN. [Concomitant]
     Active Substance: ACETAMINOPHEN
     Indication: FEBRILE NEUTROPENIA
     Dosage: ADEQUATE DOSE, UNKNOWN FREQ.
     Route: 042
     Dates: start: 20190628, end: 20190702
  12. ASG-22CE [Suspect]
     Active Substance: ENFORTUMAB VEDOTIN
     Route: 042
     Dates: start: 20190617, end: 20190712
  13. OXINORM                            /00045603/ [Concomitant]
     Active Substance: OXYCODONE HYDROCHLORIDE
     Indication: CANCER PAIN
     Dosage: ADEQUATE DOSE, UNKNOWN FREQ.
     Route: 048
     Dates: start: 20190513, end: 20190702
  14. NOVAMIN                            /00013301/ [Concomitant]
     Active Substance: PROCHLORPERAZINE
     Indication: VOMITING
     Route: 048
     Dates: start: 20190513, end: 20190702
  15. WHITE PETROLATUM [Concomitant]
     Active Substance: PETROLATUM
     Indication: RASH
     Dosage: ADEQUATE DOSE, UNKNOWN FREQ.
     Route: 061
     Dates: start: 20190624, end: 20190712
  16. AZUNOL [Concomitant]
     Indication: PRURITUS
  17. CALONAL [Concomitant]
     Active Substance: ACETAMINOPHEN
     Indication: PRODUCT USED FOR UNKNOWN INDICATION
     Route: 048
  18. VALSARTAN. [Concomitant]
     Active Substance: VALSARTAN
     Indication: HYPERTENSION
     Route: 048
     Dates: start: 20040101, end: 20190629
  19. BENZBROMARONE [Concomitant]
     Active Substance: BENZBROMARONE
     Indication: HYPERURICAEMIA
     Route: 048
     Dates: start: 20040101, end: 20190626
  20. FILGRASTIM [Concomitant]
     Active Substance: FILGRASTIM
     Indication: FEBRILE NEUTROPENIA
     Dosage: ADEQUATE DOSE, UNKNOWN FREQ.
     Route: 042
     Dates: start: 20190627, end: 20190702
  21. CISPLATIN. [Concomitant]
     Active Substance: CISPLATIN
     Indication: MALIGNANT NEOPLASM OF RENAL PELVIS
     Dosage: UNK UNK, UNKNOWN FREQ.
     Route: 065
     Dates: start: 201805
  22. SYMPROIC [Concomitant]
     Active Substance: NALDEMEDINE
     Indication: CONSTIPATION
     Route: 048
     Dates: start: 20190513, end: 20190702
  23. RESTAMIN CORTISONE [Concomitant]
     Active Substance: DIPHENHYDRAMINE HYDROCHLORIDE\HYDROCORTISONE ACETATE\NEOMYCIN SULFATE
     Indication: RASH
     Dosage: ADEQUATE DOSE, UNKNOWN FREQ.
     Route: 061
     Dates: start: 20190610, end: 20190712
  24. WHITE PETROLATUM [Concomitant]
     Active Substance: PETROLATUM
     Indication: PRURITUS
  25. ANFLAVATE [Concomitant]
     Active Substance: BETAMETHASONE BUTYRATE PROPIONATE
     Indication: RASH
     Dosage: ADEQUATE DOSE, UNKNOWN FREQ.
     Route: 061
     Dates: start: 20190628, end: 20190712
  26. ASG-22CE [Suspect]
     Active Substance: ENFORTUMAB VEDOTIN
     Dosage: 81 MG/DAY, UNKNOWN FREQ.
     Route: 042
     Dates: start: 20190610
  27. PEMBROLIZUMAB. [Concomitant]
     Active Substance: PEMBROLIZUMAB
     Indication: PRODUCT USED FOR UNKNOWN INDICATION
     Dosage: UNK UNK, UNKNOWN FREQ.
     Route: 065

REACTIONS (3)
  - Febrile neutropenia [Recovered/Resolved]
  - Pleural effusion [Not Recovered/Not Resolved]
  - Hepatic function abnormal [Fatal]

NARRATIVE: CASE EVENT DATE: 20190624
